FAERS Safety Report 5327259-0 (Version None)
Quarter: 2007Q2

REPORT INFORMATION
  Report Type: 
  Country: None (occurrence: None)
  Receive Date: 20070517
  Receipt Date: 20070508
  Transmission Date: 20071010
  Serious: Yes (Hospitalization)
  Sender: FDA-Public Use
  Company Number: AU-ROCHE-496521

PATIENT
  Age: 57 Year
  Sex: Male

DRUGS (2)
  1. CAPECITABINE [Suspect]
     Route: 048
     Dates: start: 20060928
  2. BEVACIZUMAB [Suspect]
     Dosage: TAKEN CYCLICAL.
     Route: 042

REACTIONS (2)
  - DIARRHOEA [None]
  - PARTIAL SEIZURES [None]
